FAERS Safety Report 5934270-5 (Version None)
Quarter: 2008Q4

REPORT INFORMATION
  Report Type: 
  Country: None (occurrence: None)
  Receive Date: 20081029
  Receipt Date: 20081023
  Transmission Date: 20090506
  Serious: Yes (Hospitalization)
  Sender: FDA-Public Use
  Company Number: US-BRISTOL-MYERS SQUIBB COMPANY-14381263

PATIENT
  Age: 59 Year
  Sex: Male
  Weight: 86 kg

DRUGS (12)
  1. CETUXIMAB [Suspect]
     Indication: PANCREATIC CARCINOMA
     Route: 042
     Dates: start: 20081008, end: 20081008
  2. OXALIPLATIN [Suspect]
     Indication: PANCREATIC CARCINOMA
     Route: 042
     Dates: start: 20081008, end: 20081008
  3. GEMZAR [Suspect]
     Indication: PANCREATIC CARCINOMA
     Route: 042
     Dates: start: 20081008, end: 20081008
  4. NEXIUM [Concomitant]
  5. MORPHINE SULFATE INJ [Concomitant]
  6. DILAUDID [Concomitant]
  7. LISINOPRIL [Concomitant]
  8. POLYETHYLENE GLYCOL [Concomitant]
  9. NOVOLOG [Concomitant]
  10. LEVEMIR [Concomitant]
  11. ONDANSETRON [Concomitant]
  12. PROCHLORPERAZINE [Concomitant]

REACTIONS (7)
  - DEHYDRATION [None]
  - NAUSEA [None]
  - NEUTROPENIA [None]
  - PAIN [None]
  - PHLEBITIS [None]
  - PLATELET COUNT [None]
  - THROMBOSIS [None]
